FAERS Safety Report 7575090-8 (Version None)
Quarter: 2011Q2

REPORT INFORMATION
  Report Type: 
  Country: None (occurrence: None)
  Receive Date: 20110627
  Receipt Date: 20110627
  Transmission Date: 20111010
  Serious: Yes (Hospitalization)
  Sender: FDA-Public Use
  Company Number: IT-PFIZER INC-2011098805

PATIENT
  Age: 28 Year
  Sex: Male

DRUGS (1)
  1. VARENICLINE TARTRATE [Suspect]
     Indication: SMOKING CESSATION THERAPY
     Dosage: 1 UNIT DOSE DAILY
     Route: 048
     Dates: start: 20110310, end: 20110415

REACTIONS (2)
  - ACUTE PSYCHOSIS [None]
  - CATATONIA [None]
